FAERS Safety Report 5674767-9 (Version None)
Quarter: 2008Q2

REPORT INFORMATION
  Report Type: 
  Country: None (occurrence: None)
  Receive Date: 20080304
  Receipt Date: 20070614
  Transmission Date: 20081010
  Serious: Yes (Other)
  Sender: FDA-Public Use
  Company Number: WAES 0706USA03017

PATIENT
  Age: 64 Year
  Sex: Male

DRUGS (5)
  1. PRINIVIL [Suspect]
     Dosage: PO
     Route: 048
  2. ABILIFY [Suspect]
     Dosage: 10 MG/DAILY/PO
     Route: 048
  3. ALPHAGAN [Concomitant]
  4. COSOPT [Concomitant]
  5. TRAVATAN [Concomitant]

REACTIONS (1)
  - RENAL FAILURE [None]
